FAERS Safety Report 9693555 (Version 1)
Quarter: 2013Q4

REPORT INFORMATION
  Report Type: Spontaneous
  Country: JP (occurrence: JP)
  Receive Date: 20131118
  Receipt Date: 20131118
  Transmission Date: 20140711
  Serious: Yes (Other)
  Sender: FDA-Public Use
  Company Number: JP-GLAXOSMITHKLINE-B0944099A

PATIENT
  Age: 51 Year
  Sex: Female

DRUGS (1)
  1. ZINNAT [Suspect]
     Indication: PRODUCT USED FOR UNKNOWN INDICATION
     Route: 048
     Dates: start: 201303, end: 201303

REACTIONS (1)
  - Drug-induced liver injury [Unknown]
